FAERS Safety Report 7088223-7 (Version None)
Quarter: 2010Q4

REPORT INFORMATION
  Report Type: 
  Country: None (occurrence: None)
  Receive Date: 20101108
  Receipt Date: 20101025
  Transmission Date: 20110411
  Serious: Yes (Other)
  Sender: FDA-Public Use
  Company Number: US-BAYER-201032217NA

PATIENT
  Age: 26 Year
  Sex: Female
  Weight: 66 kg

DRUGS (2)
  1. YAZ [Suspect]
     Indication: CONTRACEPTION
     Route: 048
     Dates: start: 20080111, end: 20080701
  2. YAZ [Suspect]
     Route: 048
     Dates: start: 20090901, end: 20100601

REACTIONS (2)
  - CHOLELITHIASIS [None]
  - GALLBLADDER PAIN [None]
